FAERS Safety Report 17014920 (Version 2)
Quarter: 2021Q4

REPORT INFORMATION
  Report Type: Spontaneous
  Country: US (occurrence: US)
  Receive Date: 20191111
  Receipt Date: 20211125
  Transmission Date: 20220303
  Serious: Yes (Hospitalization, Other)
  Sender: FDA-Public Use
  Company Number: US-SUN PHARMACEUTICAL INDUSTRIES LTD-2019R1-226448

PATIENT
  Age: 24 Year
  Sex: Female

DRUGS (2)
  1. CLONAZEPAM [Suspect]
     Active Substance: CLONAZEPAM
     Indication: Product used for unknown indication
     Dosage: UNK, APPROXIMATELY 15-20 CLONAZEPAM 0.5MG TABLETS
     Route: 048
  2. ACETAMINOPHEN AND DIPHENHYDRAMINE HYDROCHLORIDE [Suspect]
     Active Substance: ACETAMINOPHEN\DIPHENHYDRAMINE HYDROCHLORIDE
     Indication: Product used for unknown indication
     Dosage: UNK, INGESTION OF AN UNKNOWN AMOUNT
     Route: 048

REACTIONS (8)
  - Overdose [Unknown]
  - Mydriasis [Recovering/Resolving]
  - Tachycardia [Recovering/Resolving]
  - Delirium [Recovering/Resolving]
  - Dermatillomania [Recovering/Resolving]
  - Somnolence [Recovering/Resolving]
  - Nystagmus [Recovering/Resolving]
  - Mucosal dryness [Recovering/Resolving]
